FAERS Safety Report 8568715 (Version 2)
Quarter: 2014Q1

REPORT INFORMATION
  Report Type: Spontaneous
  Country: US (occurrence: None)
  Receive Date: 20120323
  Receipt Date: 20130305
  Transmission Date: 20141002
  Serious: Yes (Disabling, Other)
  Sender: FDA-Public Use
  Company Number: 163-21880-11113204

PATIENT
  Age: 87 Year
  Sex: Female

DRUGS (1)
  1. REVLIMID(LENALIDOMIDE) (10 MILLIGRAM, CAPSULES) [Suspect]
     Indication: PLASMA CELL MYELOMA
     Dosage: 10 MG, TIMES 21 DAYS, PO
     Route: 048
     Dates: start: 20100618

REACTIONS (4)
  - Decreased appetite [None]
  - Weight decreased [None]
  - Upper respiratory tract infection [None]
  - Diarrhoea haemorrhagic [None]
